FAERS Safety Report 8776845 (Version 5)
Quarter: 2013Q3

REPORT INFORMATION
  Report Type: Report from Study
  Country: JP (occurrence: JP)
  Receive Date: 20120911
  Receipt Date: 20130711
  Transmission Date: 20140515
  Serious: Yes (Disabling, Other)
  Sender: FDA-Public Use
  Company Number: JP-009507513-1209JPN000680

PATIENT
  Age: 26 Year
  Sex: Male
  Weight: 55 kg

DRUGS (18)
  1. PEGINTRON [Suspect]
     Indication: CHRONIC HEPATITIS C
     Dosage: 1.5 MICROGRAM PER KILOGRAM, QW
     Route: 058
     Dates: start: 20120507, end: 20121015
  2. REBETOL [Suspect]
     Indication: CHRONIC HEPATITIS C
     Dosage: 600 MG, QD
     Route: 048
     Dates: start: 20120507, end: 20120520
  3. REBETOL [Suspect]
     Dosage: 400 MG, QD
     Route: 048
     Dates: start: 20120521, end: 20120527
  4. REBETOL [Suspect]
     Dosage: 200 MG, QD
     Route: 048
     Dates: start: 20120528, end: 20120910
  5. REBETOL [Suspect]
     Dosage: 400 MG,QD
     Route: 048
     Dates: start: 20120910, end: 20120924
  6. REBETOL [Suspect]
     Dosage: 600 M,QD
     Route: 048
     Dates: start: 20120924, end: 20121022
  7. TELAVIC [Suspect]
     Indication: CHRONIC HEPATITIS C
     Dosage: 2250 MG, QD
     Route: 048
     Dates: start: 20120507, end: 20120625
  8. TELAVIC [Suspect]
     Dosage: 2250 MG, QD
     Route: 048
     Dates: start: 20120702, end: 20120710
  9. TELAVIC [Suspect]
     Dosage: 2250 MG, QD
     Route: 048
     Dates: start: 20120717, end: 20120723
  10. TELAVIC [Suspect]
     Dosage: 2250 MG,QD
     Route: 048
     Dates: start: 20120730, end: 20120806
  11. TELAVIC [Suspect]
     Dosage: 1500 MG,QD
     Route: 048
     Dates: start: 20120813, end: 20120827
  12. ALLOPURINOL [Concomitant]
     Indication: CHRONIC HEPATITIS C
     Dosage: 300 MG, QD; FORMULATION POR
     Route: 048
     Dates: start: 20120717, end: 20120723
  13. ALLOPURINOL [Concomitant]
     Dosage: 300 MG, DAY,AS NEEDED; FORMULATION:POR
     Route: 048
  14. ALLELOCK [Concomitant]
     Indication: CHRONIC HEPATITIS C
     Dosage: 10 MG, QD, AS NEEDED;FORMULATION:POR
     Route: 048
  15. ALLELOCK [Concomitant]
     Dosage: 10 MG, PRN, QD; FORMULATION: POR
  16. ANTEBATE [Concomitant]
     Dosage: UNK, PRN; FORMULATION:OIT
     Route: 061
  17. LOCOID [Concomitant]
     Dosage: UNK, PRN; FORMULATION:OIT
     Route: 061
  18. LOXOPROFEN [Concomitant]
     Dosage: 60 MG, QD,AS NEEDED;FORMULATION:POR
     Route: 048

REACTIONS (7)
  - Hyperuricaemia [Recovered/Resolved]
  - Renal impairment [Recovered/Resolved]
  - Palmar-plantar erythrodysaesthesia syndrome [Not Recovered/Not Resolved]
  - Decreased appetite [Recovered/Resolved]
  - Hyperuricaemia [Recovered/Resolved]
  - Renal impairment [Recovered/Resolved]
  - Hyperuricaemia [Recovered/Resolved]
